FAERS Safety Report 9091048 (Version 1)
Quarter: 2013Q1

REPORT INFORMATION
  Report Type: Spontaneous
  Country: ES (occurrence: ES)
  Receive Date: 20130201
  Receipt Date: 20130201
  Transmission Date: 20140127
  Serious: Yes (Hospitalization)
  Sender: FDA-Public Use
  Company Number: ES-ASTRAZENECA-2013SE05754

PATIENT
  Age: 86 Year
  Sex: Female

DRUGS (4)
  1. ATACAND PLUS [Suspect]
     Indication: HYPERTENSION
     Dosage: 16/12.5MG 1 DF DAILY
     Route: 048
     Dates: start: 20061005, end: 20061029
  2. ADIRO [Concomitant]
     Route: 048
  3. AUGMENTINE [Concomitant]
     Dosage: 875/125 MG 1DF THREE TIMES A DAY
     Route: 048
     Dates: start: 20061015, end: 200610
  4. ATACAND [Concomitant]
     Route: 048
     Dates: end: 20061004

REACTIONS (3)
  - Hypotension [Recovered/Resolved]
  - Syncope [Recovered/Resolved]
  - Renal failure acute [Recovered/Resolved]
